FAERS Safety Report 7266017-7 (Version None)
Quarter: 2011Q1

REPORT INFORMATION
  Report Type: 
  Country: None (occurrence: None)
  Receive Date: 20110131
  Receipt Date: 20110124
  Transmission Date: 20110831
  Serious: Yes (Death, Hospitalization, Other)
  Sender: FDA-Public Use
  Company Number: US-PFIZER INC-2010034435

PATIENT
  Sex: Male

DRUGS (5)
  1. DILANTIN [Suspect]
     Indication: CONVULSION
     Dosage: 300 MG, UNK
     Dates: start: 20030811, end: 20030908
  2. FLUMADINE [Concomitant]
  3. PRINIVIL [Concomitant]
     Dosage: 20 MG, UNK
  4. PEPCID [Concomitant]
     Dosage: 20 MG, 2X/DAY
  5. DECADRON [Concomitant]
     Dosage: 2 MG, 2X/DAY

REACTIONS (1)
  - STEVENS-JOHNSON SYNDROME [None]
